FAERS Safety Report 8028667 (Version 2)
Quarter: 2013Q1

REPORT INFORMATION
  Report Type: Spontaneous
  Country: US (occurrence: US)
  Receive Date: 20110711
  Receipt Date: 20130313
  Transmission Date: 20140127
  Serious: Yes (Other)
  Sender: FDA-Public Use
  Company Number: US-ROCHE-788243

PATIENT
  Age: 15 Year
  Sex: Male

DRUGS (2)
  1. ACCUTANE [Suspect]
     Indication: ACNE
     Route: 065
     Dates: start: 19911119, end: 19920123
  2. ACCUTANE [Suspect]
     Route: 065

REACTIONS (8)
  - Crohn^s disease [Unknown]
  - Inflammatory bowel disease [Unknown]
  - Anal fistula [Unknown]
  - Injury [Unknown]
  - Colitis ulcerative [Unknown]
  - Large intestine polyp [Unknown]
  - Xerosis [Unknown]
  - Headache [Recovered/Resolved]
